FAERS Safety Report 13564002 (Version 2)
Quarter: 2017Q3

REPORT INFORMATION
  Report Type: Report from Study
  Country: US (occurrence: US)
  Receive Date: 20170519
  Receipt Date: 20170825
  Transmission Date: 20171127
  Serious: No
  Sender: FDA-Public Use
  Company Number: PHHY2015US004630

PATIENT
  Age: 52 Year
  Sex: Female

DRUGS (3)
  1. BIOTIN [Concomitant]
     Active Substance: BIOTIN
     Indication: PALLIATIVE CARE
     Dosage: UNK
     Route: 065
     Dates: start: 20151208
  2. GILENYA [Suspect]
     Active Substance: FINGOLIMOD HYDROCHLORIDE
     Indication: MULTIPLE SCLEROSIS
     Dosage: UNK, QD
     Route: 048
  3. RITALIN [Concomitant]
     Active Substance: METHYLPHENIDATE HYDROCHLORIDE
     Indication: FATIGUE
     Dosage: UNK
     Route: 065
     Dates: start: 20151208, end: 20160322

REACTIONS (13)
  - Haemangioma of skin [Unknown]
  - Lentigo [Unknown]
  - Seborrhoeic keratosis [Unknown]
  - Oedema peripheral [Unknown]
  - Melanocytic naevus [Unknown]
  - Asthenia [Unknown]
  - Presbyopia [Unknown]
  - Hypersomnia [Unknown]
  - Blood bilirubin decreased [Recovered/Resolved]
  - Paraesthesia [Unknown]
  - Gait disturbance [Unknown]
  - Vitamin D deficiency [Unknown]
  - Dizziness [Unknown]

NARRATIVE: CASE EVENT DATE: 20140911
